FAERS Safety Report 22303071 (Version 1)
Quarter: 2023Q2

REPORT INFORMATION
  Report Type: Report from Study
  Country: CA (occurrence: CA)
  Receive Date: 20230510
  Receipt Date: 20230510
  Transmission Date: 20230722
  Serious: Yes (Other)
  Sender: FDA-Public Use
  Company Number: CA-ABBVIE-4760669

PATIENT
  Sex: Female

DRUGS (1)
  1. RINVOQ [Suspect]
     Active Substance: UPADACITINIB
     Indication: Rheumatoid arthritis
     Route: 048
     Dates: start: 20211111, end: 20230420

REACTIONS (3)
  - Wrist surgery [Unknown]
  - Pain [Unknown]
  - Wound [Unknown]

NARRATIVE: CASE EVENT DATE: 20230101
